FAERS Safety Report 6235286-4 (Version None)
Quarter: 2009Q2

REPORT INFORMATION
  Report Type: 
  Country: None (occurrence: None)
  Receive Date: 20090618
  Receipt Date: 20090605
  Transmission Date: 20091009
  Serious: Yes (Death)
  Sender: FDA-Public Use
  Company Number: JP-ABBOTT-09P-087-0580125-00

PATIENT
  Age: 58 Year
  Sex: Male

DRUGS (10)
  1. LEUPROLIDE ACETATE [Suspect]
     Indication: PROSTATE CANCER STAGE IV
     Route: 058
     Dates: start: 20070612, end: 20081225
  2. CASODEX [Concomitant]
     Indication: PROSTATE CANCER STAGE IV
     Route: 048
     Dates: start: 20070612, end: 20080526
  3. ASPIRIN [Concomitant]
     Indication: THROMBOSIS PROPHYLAXIS
     Route: 048
     Dates: start: 20070613
  4. DIETHYLSTILBESTROL [Concomitant]
     Indication: PROSTATE CANCER STAGE IV
     Route: 048
     Dates: start: 20080527, end: 20080824
  5. VOLTAREN [Concomitant]
     Indication: PAIN
     Route: 054
     Dates: start: 20080812, end: 20090101
  6. MS CONTIN [Concomitant]
     Indication: PAIN
     Route: 048
     Dates: start: 20080825, end: 20080908
  7. MS CONTIN [Concomitant]
     Route: 048
     Dates: start: 20080909, end: 20081006
  8. DUROTEP [Concomitant]
     Indication: PAIN
     Dosage: MT PATCH ONCE DAILY
     Route: 062
     Dates: start: 20081007, end: 20081015
  9. DUROTEP [Concomitant]
     Dosage: MT PATCH ONCE DAILY
     Route: 062
     Dates: start: 20081016, end: 20090310
  10. OXINORM [Concomitant]
     Indication: PAIN
     Route: 048
     Dates: start: 20090102, end: 20090310

REACTIONS (2)
  - LIVER DISORDER [None]
  - PROSTATE CANCER METASTATIC [None]
